FAERS Safety Report 8967642 (Version 1)
Quarter: 2012Q4

REPORT INFORMATION
  Report Type: Spontaneous
  Country: FR (occurrence: None)
  Receive Date: 20121204
  Receipt Date: 20121204
  Transmission Date: 20130627
  Serious: Yes (Death, Other)
  Sender: FDA-Public Use
  Company Number: VAL_01011_2012

PATIENT

DRUGS (1)
  1. BENAZEPRIL [Suspect]
     Indication: PRODUCT USED FOR UNKNOWN INDICATION
     Dosage: (DF)
     Route: 064

REACTIONS (4)
  - Maternal drugs affecting foetus [None]
  - Renal failure neonatal [None]
  - Oligohydramnios [None]
  - Premature baby [None]
